FAERS Safety Report 6903469-3 (Version None)
Quarter: 2010Q3

REPORT INFORMATION
  Report Type: 
  Country: None (occurrence: None)
  Receive Date: 20100803
  Receipt Date: 20081011
  Transmission Date: 20110219
  Serious: No
  Sender: FDA-Public Use
  Company Number: US-PFIZER INC-2008070868

PATIENT
  Age: 79 Year
  Sex: Male

DRUGS (13)
  1. LYRICA [Suspect]
     Indication: PAIN
     Route: 048
     Dates: start: 20080825
  2. ATIVAN [Concomitant]
     Route: 048
     Dates: start: 20080610
  3. ZOCOR [Concomitant]
     Route: 048
     Dates: start: 20080324
  4. OLANZAPINE [Concomitant]
     Route: 048
     Dates: start: 20080131
  5. LACTULOSE [Concomitant]
     Route: 048
     Dates: start: 20071217
  6. COMBIVENT [Concomitant]
     Route: 055
     Dates: start: 20071213
  7. METFORMIN HCL [Concomitant]
     Route: 048
     Dates: start: 20071213
  8. SEROQUEL [Concomitant]
     Route: 048
     Dates: start: 20071213
  9. NEURONTIN [Concomitant]
     Route: 048
     Dates: start: 20071213
  10. NAMENDA [Concomitant]
     Route: 048
     Dates: start: 20071213
  11. MOTRIN [Concomitant]
     Route: 048
     Dates: start: 20071213
  12. LAMICTAL [Concomitant]
     Route: 048
     Dates: start: 20071213
  13. ACETYLSALICYLIC ACID SRT [Concomitant]
     Route: 048
     Dates: start: 20071212

REACTIONS (1)
  - DYSPHAGIA [None]
